FAERS Safety Report 5822153-0 (Version None)
Quarter: 2008Q3

REPORT INFORMATION
  Report Type: 
  Country: None (occurrence: None)
  Receive Date: 20080725
  Receipt Date: 20080715
  Transmission Date: 20090109
  Serious: Yes (Hospitalization, Other)
  Sender: FDA-Public Use
  Company Number: BR-JNJFOC-20080703981

PATIENT
  Age: 48 Year
  Sex: Male

DRUGS (1)
  1. REMICADE [Suspect]
     Indication: PSORIASIS
     Dosage: INFUSIONS ON UNKNOWN DATES FOR MORE THAN A YEAR
     Route: 042

REACTIONS (1)
  - DISSEMINATED TUBERCULOSIS [None]
